FAERS Safety Report 20156941 (Version 1)
Quarter: 2021Q4

REPORT INFORMATION
  Report Type: Spontaneous
  Country: SE (occurrence: SE)
  Receive Date: 20211207
  Receipt Date: 20211207
  Transmission Date: 20220303
  Serious: Yes (Other)
  Sender: FDA-Public Use
  Company Number: None

PATIENT
  Age: 29 Year
  Sex: Male

DRUGS (2)
  1. SULFASALAZINE [Suspect]
     Active Substance: SULFASALAZINE
     Indication: Psoriatic arthropathy
     Dosage: 500 MG (SCHEDULE OF UPTAKE FROM 1 TABLET TWICE DAILY TO 2 TABLETS TWICE DAILY)
     Route: 048
     Dates: start: 20211008, end: 20211103
  2. ARCOXIA [Concomitant]
     Active Substance: ETORICOXIB
     Dosage: 60 MG (1 TABLET IF NEEDED)
     Route: 048
     Dates: start: 20191202

REACTIONS (5)
  - Hypersensitivity [Recovering/Resolving]
  - Hepatitis toxic [Recovering/Resolving]
  - Rash maculo-papular [Recovering/Resolving]
  - Cough [Recovering/Resolving]
  - Pyrexia [Recovering/Resolving]

NARRATIVE: CASE EVENT DATE: 20211031
